FAERS Safety Report 7134325-6 (Version None)
Quarter: 2010Q4

REPORT INFORMATION
  Report Type: 
  Country: None (occurrence: None)
  Receive Date: 20101117
  Receipt Date: 20101104
  Transmission Date: 20110411
  Serious: Yes (Death)
  Sender: FDA-Public Use
  Company Number: MPS1-1000391

PATIENT
  Age: 7 Year
  Sex: Female
  Weight: 15 kg

DRUGS (1)
  1. ALDURAZYME [Suspect]
     Indication: MUCOPOLYSACCHARIDOSIS
     Dosage: 8.9 MG, QW, INTRAVENOUS
     Route: 042
     Dates: start: 20080912, end: 20101026

REACTIONS (3)
  - CARDIAC ARREST [None]
  - PNEUMONIA [None]
  - RESPIRATORY DISTRESS [None]
